FAERS Safety Report 7580379-2 (Version None)
Quarter: 2011Q2

REPORT INFORMATION
  Report Type: 
  Country: None (occurrence: None)
  Receive Date: 20110629
  Receipt Date: 20110620
  Transmission Date: 20111010
  Serious: Yes (Other)
  Sender: FDA-Public Use
  Company Number: US-ASTRAZENECA-2011SE37431

PATIENT
  Age: 52 Year
  Sex: Male

DRUGS (9)
  1. ROSUVASTATIN CALCIUM [Suspect]
     Route: 048
  2. RAMIPRIL [Concomitant]
     Indication: HYPERTENSION
     Dates: start: 20100525
  3. RAMIPRIL [Concomitant]
     Dates: start: 20100713
  4. PLAVIX [Concomitant]
     Indication: CARDIOVASCULAR EVENT PROPHYLAXIS
     Dates: start: 20100525
  5. METOPROLOL TARTRATE [Concomitant]
     Dates: start: 20100521, end: 20100526
  6. ATORVASTATIN [Suspect]
     Route: 065
  7. PRAVASTATIN SODIUM [Suspect]
     Indication: MYOCARDIAL INFARCTION
     Route: 048
     Dates: start: 20101022, end: 20110102
  8. PRAVASTATIN SODIUM [Suspect]
     Route: 048
  9. ASPIRIN [Concomitant]
     Indication: MYOCARDIAL INFARCTION
     Dates: start: 20100525

REACTIONS (16)
  - SLEEP APNOEA SYNDROME [None]
  - JOINT STIFFNESS [None]
  - LOCAL SWELLING [None]
  - MUSCLE SPASMS [None]
  - MUSCULOSKELETAL STIFFNESS [None]
  - NASAL DISORDER [None]
  - DYSARTHRIA [None]
  - BLOOD CREATINE PHOSPHOKINASE INCREASED [None]
  - MYALGIA [None]
  - MYOCARDIAL INFARCTION [None]
  - HEPATIC ENZYME INCREASED [None]
  - FATIGUE [None]
  - SINUS DISORDER [None]
  - OEDEMA PERIPHERAL [None]
  - ARTHRALGIA [None]
  - ASTHENIA [None]
